FAERS Safety Report 10094726 (Version 2)
Quarter: 2014Q2

REPORT INFORMATION
  Report Type: Spontaneous
  Country: ES (occurrence: DE)
  Receive Date: 20140422
  Receipt Date: 20140501
  Transmission Date: 20141212
  Serious: Yes (Disabling)
  Sender: FDA-Public Use
  Company Number: DE-FRI-1000066681

PATIENT
  Sex: Female

DRUGS (14)
  1. ACLIDINIUM [Suspect]
     Dosage: 2 DF
     Route: 055
  2. ATACAND [Concomitant]
     Dosage: 32 MG
     Route: 048
  3. L-THYROXINE 150 [Concomitant]
     Route: 048
  4. PANTOPRAZOL DURA [Concomitant]
     Route: 048
  5. LIPROLOG 100 U/ML KWIKPEN [Concomitant]
     Route: 058
  6. HUMINSULIN BASAL NPH KWIKPEN [Concomitant]
     Dosage: 32 UNITS BY NIGHT
     Route: 058
  7. METFORMIN SANDOZ [Concomitant]
     Dosage: 1000 MG
     Route: 048
  8. HCT 1A 25 MG [Concomitant]
     Dosage: 1/2 OR 1 IN THE MORNING
     Route: 048
  9. BUDECORT NOVOLIZER 400 [Concomitant]
     Route: 055
  10. FORMOTOP 12 [Concomitant]
     Route: 055
  11. BEROTEC N [Concomitant]
     Dosage: MAX. 4X2 AS NEEDED
     Route: 055
  12. ASS ABZ PROTECT [Concomitant]
     Route: 048
  13. INFECTOTRIMET 50 MG [Concomitant]
     Dosage: 50 MG
     Route: 048
  14. AMLODIPIN ABZ 10 MG [Concomitant]
     Route: 048

REACTIONS (8)
  - Dizziness [Recovered/Resolved]
  - Fatigue [Recovered/Resolved]
  - Chills [Recovered/Resolved]
  - Dysphonia [Recovered/Resolved]
  - Tachycardia [Recovered/Resolved]
  - Vision blurred [Recovered/Resolved]
  - Urinary retention [Recovered/Resolved]
  - Quality of life decreased [Recovered/Resolved]
